FAERS Safety Report 10062938 (Version 1)
Quarter: 2014Q2

REPORT INFORMATION
  Report Type: Spontaneous
  Country: GB (occurrence: GB)
  Receive Date: 20140407
  Receipt Date: 20140407
  Transmission Date: 20141212
  Serious: Yes (Other)
  Sender: FDA-Public Use
  Company Number: GB-PFIZER INC-2014091333

PATIENT
  Age: 9 Year
  Sex: Male

DRUGS (1)
  1. VORICONAZOLE [Suspect]
     Indication: PULMONARY MASS
     Dosage: UNK
     Dates: start: 200611, end: 2007

REACTIONS (5)
  - Multiple lentigines syndrome [Unknown]
  - Melanocytic naevus [Unknown]
  - Rash [Unknown]
  - Photosensitivity reaction [Unknown]
  - Macular pigmentation [Unknown]
